FAERS Safety Report 7308660-2 (Version None)
Quarter: 2011Q1

REPORT INFORMATION
  Report Type: 
  Country: None (occurrence: None)
  Receive Date: 20110223
  Receipt Date: 20110217
  Transmission Date: 20110831
  Serious: Yes (Hospitalization)
  Sender: FDA-Public Use
  Company Number: JP-EISAI INC-E2090-01497-SPO-JP

PATIENT
  Age: 28 Year
  Sex: Female
  Weight: 55 kg

DRUGS (12)
  1. PHENOBALBITUL [Concomitant]
     Indication: CONVULSION
     Dates: start: 20070101
  2. FOSFOMYCIN [Concomitant]
     Dates: start: 20070101
  3. METHYLPREDNISOLONE [Concomitant]
     Dates: start: 20070101
  4. EXCEGRAN [Suspect]
     Indication: CONVULSION
     Route: 048
     Dates: start: 20070101
  5. HAPTOGLOBIN [Concomitant]
     Dosage: 4000 U/DAY
     Dates: start: 20070101
  6. DIAZEPAM [Concomitant]
     Indication: CONVULSION
     Dates: start: 20070101
  7. PHENYTOIN [Concomitant]
     Indication: CONVULSION
     Dates: start: 20070101
  8. STEROID PULSE THERAPY [Concomitant]
     Dates: start: 20070101
  9. NAFAMOSTAT MESILATE [Concomitant]
     Dates: start: 20070101
  10. GAMMA GLOBULINS [Concomitant]
     Dates: start: 20070101
  11. PROPOFOL [Concomitant]
     Indication: SEDATION
     Dates: start: 20070101
  12. GLYCEOL [Concomitant]
     Route: 041
     Dates: start: 20070101

REACTIONS (1)
  - DRUG RASH WITH EOSINOPHILIA AND SYSTEMIC SYMPTOMS [None]
